FAERS Safety Report 6250188-5 (Version None)
Quarter: 2009Q2

REPORT INFORMATION
  Report Type: 
  Country: None (occurrence: None)
  Receive Date: 20090626
  Receipt Date: 20090618
  Transmission Date: 20091009
  Serious: Yes (Other)
  Sender: FDA-Public Use
  Company Number: CHPA2009US13676

PATIENT
  Age: 33 Year
  Sex: Female
  Weight: 74.8 kg

DRUGS (2)
  1. THERAFLU NIGHTTIME SEVERE COLD WARMING SYRUP (NCH)(PARACETAMOL, DIPHEN [Suspect]
     Indication: OROPHARYNGEAL PAIN
     Dosage: 6 TSP, QID, ORAL
     Route: 048
     Dates: start: 20090614, end: 20090616
  2. THERAFLU NIGHTTIME SEVERE COLD WARMING SYRUP (NCH)(PARACETAMOL, DIPHEN [Suspect]
     Indication: UPPER RESPIRATORY TRACT CONGESTION
     Dosage: 6 TSP, QID, ORAL
     Route: 048
     Dates: start: 20090614, end: 20090616

REACTIONS (1)
  - ANOSMIA [None]
